FAERS Safety Report 25831124 (Version 1)
Quarter: 2025Q3

REPORT INFORMATION
  Report Type: Report from Study
  Country: US (occurrence: US)
  Receive Date: 20250922
  Receipt Date: 20250922
  Transmission Date: 20251021
  Serious: Yes (Other)
  Sender: ABBVIE
  Company Number: US-ABBVIE-5744212

PATIENT
  Age: 59 Year
  Sex: Female

DRUGS (2)
  1. SKYRIZI [Suspect]
     Active Substance: RISANKIZUMAB-RZAA
     Indication: Psoriasis
     Route: 058
     Dates: start: 20230920, end: 202501
  2. SKYRIZI [Suspect]
     Active Substance: RISANKIZUMAB-RZAA
     Route: 058
     Dates: start: 2025

REACTIONS (10)
  - Gastric ulcer [Not Recovered/Not Resolved]
  - Rash macular [Unknown]
  - Therapeutic product effect incomplete [Not Recovered/Not Resolved]
  - Psoriasis [Recovered/Resolved]
  - Alopecia [Unknown]
  - Decreased appetite [Unknown]
  - Weight increased [Unknown]
  - Arthralgia [Unknown]
  - Depression [Unknown]
  - Pain [Unknown]

NARRATIVE: CASE EVENT DATE: 20230920
